FAERS Safety Report 22269308 (Version 2)
Quarter: 2023Q2

REPORT INFORMATION
  Report Type: Spontaneous
  Country: US (occurrence: None)
  Receive Date: 20230501
  Receipt Date: 20230503
  Transmission Date: 20230721
  Serious: Yes (Hospitalization)
  Sender: FDA-Public Use
  Company Number: 2023A096735

PATIENT
  Age: 64 Year
  Sex: Female
  Weight: 73.9 kg

DRUGS (5)
  1. BRILINTA [Suspect]
     Active Substance: TICAGRELOR
     Indication: Coronary artery disease
     Route: 048
     Dates: start: 20230218
  2. BRILINTA [Suspect]
     Active Substance: TICAGRELOR
     Indication: Complication associated with device
     Route: 048
     Dates: start: 20230218
  3. INCLISIRAN [Suspect]
     Active Substance: INCLISIRAN
     Indication: Acute coronary syndrome
     Dosage: 300 MG PER 1.5 ML AT BASELINE, DAY 90 AND DAY 270 200MG/ML
     Route: 058
     Dates: start: 20230328
  4. ASPIRIN [Suspect]
     Active Substance: ASPIRIN
     Indication: Coronary artery disease
     Route: 048
     Dates: start: 20230219
  5. ASPIRIN [Suspect]
     Active Substance: ASPIRIN
     Indication: Complication associated with device
     Route: 048
     Dates: start: 20230219

REACTIONS (7)
  - Blood loss anaemia [Recovering/Resolving]
  - Headache [Recovered/Resolved]
  - Hypoaesthesia [Recovered/Resolved]
  - Facial discomfort [Unknown]
  - Haemoglobin decreased [Recovering/Resolving]
  - Faeces discoloured [Recovering/Resolving]
  - Diverticulum [Unknown]

NARRATIVE: CASE EVENT DATE: 20230402
